FAERS Safety Report 19588611 (Version 1)
Quarter: 2021Q3

REPORT INFORMATION
  Report Type: Spontaneous
  Country: US (occurrence: US)
  Receive Date: 20210721
  Receipt Date: 20210721
  Transmission Date: 20211014
  Serious: No
  Sender: FDA-Public Use
  Company Number: US-KARYOPHARM-2021KPT000728

PATIENT

DRUGS (13)
  1. XPOVIO [Suspect]
     Active Substance: SELINEXOR
     Indication: PLASMA CELL MYELOMA
     Dosage: 100 MG, WEEKLY
     Route: 048
     Dates: start: 20210427, end: 20210526
  2. ACICLOVIR [Concomitant]
     Active Substance: ACYCLOVIR
  3. DESIPRAMINE [Concomitant]
     Active Substance: DESIPRAMINE
  4. INSPRA [Concomitant]
     Active Substance: EPLERENONE
  5. LIPITOR [Concomitant]
     Active Substance: ATORVASTATIN CALCIUM
  6. REQUIP XL [Concomitant]
     Active Substance: ROPINIROLE HYDROCHLORIDE
  7. OLANZAPINE. [Concomitant]
     Active Substance: OLANZAPINE
  8. ALBUTEROL HFA [Concomitant]
     Active Substance: ALBUTEROL SULFATE
  9. COREG [Concomitant]
     Active Substance: CARVEDILOL
  10. DEXAMETHASONE. [Concomitant]
     Active Substance: DEXAMETHASONE
  11. FLOMAX RELIEF [Concomitant]
     Active Substance: TAMSULOSIN HYDROCHLORIDE
  12. ZOLOFT [Concomitant]
     Active Substance: SERTRALINE HYDROCHLORIDE
  13. LYRICA [Concomitant]
     Active Substance: PREGABALIN

REACTIONS (1)
  - Drug ineffective [Unknown]

NARRATIVE: CASE EVENT DATE: 202105
